FAERS Safety Report 6532328-3 (Version None)
Quarter: 2010Q1

REPORT INFORMATION
  Report Type: 
  Country: None (occurrence: None)
  Receive Date: 20100108
  Receipt Date: 20100104
  Transmission Date: 20100710
  Serious: Yes (Other)
  Sender: FDA-Public Use
  Company Number: BE-AMGEN-UK370285

PATIENT
  Age: 4 Year
  Sex: Female
  Weight: 23.6 kg

DRUGS (1)
  1. NEUPOGEN [Suspect]
     Indication: DRUG USE FOR UNKNOWN INDICATION
     Route: 065
     Dates: start: 20091014, end: 20091014

REACTIONS (3)
  - ACCIDENTAL OVERDOSE [None]
  - NO ADVERSE EVENT [None]
  - WHITE BLOOD CELL COUNT DECREASED [None]
